FAERS Safety Report 24765386 (Version 1)
Quarter: 2024Q4

REPORT INFORMATION
  Report Type: Spontaneous
  Country: US (occurrence: US)
  Receive Date: 20241223
  Receipt Date: 20241223
  Transmission Date: 20250115
  Serious: No
  Sender: LEO PHARM
  Company Number: US-LEO Pharma-376147

PATIENT
  Age: 80 Year
  Sex: Male

DRUGS (1)
  1. ADBRY [Suspect]
     Active Substance: TRALOKINUMAB-LDRM
     Indication: Dermatitis atopic
     Dosage: DOSE/FREQUENCY: INJECT 2 PENS UNDER THE SKIN ON DAY 1, THEN MAINTENANCE DOSING THEREAFTER STARTING D
     Dates: end: 202412

REACTIONS (1)
  - Illness [Unknown]
